FAERS Safety Report 21844801 (Version 2)
Quarter: 2023Q1

REPORT INFORMATION
  Report Type: Spontaneous
  Country: FR (occurrence: FR)
  Receive Date: 20230110
  Receipt Date: 20230120
  Transmission Date: 20230418
  Serious: Yes (Hospitalization)
  Sender: FDA-Public Use
  Company Number: None

PATIENT
  Age: 56 Year
  Sex: Male
  Weight: 59 kg

DRUGS (2)
  1. DELSTRIGO [Suspect]
     Active Substance: DORAVIRINE\LAMIVUDINE\TENOFOVIR DISOPROXIL FUMARATE
     Indication: HIV infection
     Dosage: 1 DOSAGE FORM
     Dates: start: 2004
  2. COMIRNATY [Suspect]
     Active Substance: TOZINAMERAN
     Indication: COVID-19 immunisation
     Dosage: 1 DOSAGE FORM, R3
     Route: 030
     Dates: start: 20221027

REACTIONS (2)
  - Myocardial infarction [Recovered/Resolved with Sequelae]
  - Unmasking of previously unidentified disease [Recovered/Resolved with Sequelae]

NARRATIVE: CASE EVENT DATE: 20221102
